FAERS Safety Report 4780391-2 (Version None)
Quarter: 2005Q3

REPORT INFORMATION
  Report Type: 
  Country: None (occurrence: None)
  Receive Date: 20050926
  Receipt Date: 20050909
  Transmission Date: 20060218
  Serious: Yes (Hospitalization)
  Sender: FDA-Public Use
  Company Number: DSA_26909_2005

PATIENT
  Age: 73 Year
  Sex: Male

DRUGS (3)
  1. RENIVACE [Suspect]
     Dosage: DF, PO
     Route: 048
  2. AMLODIPINE BESYLATE [Suspect]
     Dosage: DF, PO
     Route: 048
  3. LEVOFLOXACIN [Suspect]
     Dosage: DF,

REACTIONS (5)
  - ANAEMIA [None]
  - CYTOMEGALOVIRUS ANTIGEN POSITIVE [None]
  - LYMPHOCYTE STIMULATION TEST POSITIVE [None]
  - SKIN TEST POSITIVE [None]
  - TOXIC EPIDERMAL NECROLYSIS [None]
